FAERS Safety Report 19439468 (Version 1)
Quarter: 2021Q2

REPORT INFORMATION
  Report Type: Spontaneous
  Country: DE (occurrence: DE)
  Receive Date: 20210618
  Receipt Date: 20210618
  Transmission Date: 20210717
  Serious: Yes (Other)
  Sender: FDA-Public Use
  Company Number: DE-CELLTRION INC.-2021DE007552

PATIENT

DRUGS (3)
  1. REMSIMA [Suspect]
     Active Substance: INFLIXIMAB
     Indication: COLITIS ULCERATIVE
     Dosage: 2 WEEKS BEFORE
     Route: 042
     Dates: start: 20210519
  2. REMSIMA [Suspect]
     Active Substance: INFLIXIMAB
     Dosage: UNK
     Route: 042
     Dates: start: 20210601
  3. GRANUFINK [Concomitant]
     Dosage: UNK

REACTIONS (7)
  - Drug ineffective [Unknown]
  - Epistaxis [Recovered/Resolved]
  - Haematochezia [Not Recovered/Not Resolved]
  - Aphthous ulcer [Recovered/Resolved]
  - Nausea [Unknown]
  - Depression [Unknown]
  - Pain in extremity [Unknown]
